FAERS Safety Report 9513046 (Version 2)
Quarter: 2013Q3

REPORT INFORMATION
  Report Type: Spontaneous
  Country: US (occurrence: US)
  Receive Date: 20130910
  Receipt Date: 20130913
  Transmission Date: 20140515
  Serious: No
  Sender: FDA-Public Use
  Company Number: US-PFIZER INC-2013257106

PATIENT
  Age: 63 Year
  Sex: Male
  Weight: 88.44 kg

DRUGS (5)
  1. NIFEDIPINE [Suspect]
     Indication: HYPERTENSION
     Dosage: 90 MG, 1X/DAY
  2. VIAGRA [Interacting]
     Dosage: 100 MG, 1X/DAY
     Dates: start: 2013
  3. METOPROLOL [Interacting]
     Indication: HYPERTENSION
     Dosage: 75 MG, 2X/DAY
  4. OXYCODONE [Concomitant]
     Indication: PAIN
     Dosage: 5 MG, 4X/DAY
  5. OXYCODONE [Concomitant]
     Indication: INTERVERTEBRAL DISC INJURY

REACTIONS (2)
  - Drug interaction [Unknown]
  - Drug ineffective [Unknown]
